FAERS Safety Report 23649465 (Version 1)
Quarter: 2024Q1

REPORT INFORMATION
  Report Type: Spontaneous
  Country: CA (occurrence: CA)
  Receive Date: 20240319
  Receipt Date: 20240319
  Transmission Date: 20240409
  Serious: Yes (Hospitalization, Other)
  Sender: FDA-Public Use
  Company Number: CA-GILEAD-2024-0666227

PATIENT
  Age: 37 Year
  Sex: Male
  Weight: 97 kg

DRUGS (36)
  1. YESCARTA [Suspect]
     Active Substance: AXICABTAGENE CILOLEUCEL
     Indication: Diffuse large B-cell lymphoma refractory
     Dosage: UNK, ONCE
     Route: 042
  2. ACETAMINOPHEN [Concomitant]
     Active Substance: ACETAMINOPHEN
  3. ACTEMRA [Concomitant]
     Active Substance: TOCILIZUMAB
  4. ACYCLOVIR [Concomitant]
     Active Substance: ACYCLOVIR
  5. ANUSOL HC [BENZYL BENZOATE;BISMUTH HYDROXIDE;BISMUTH SUBGALLATE;HYDROC [Concomitant]
  6. APIXABAN [Concomitant]
     Active Substance: APIXABAN
  7. CANCIDAS [Concomitant]
     Active Substance: CASPOFUNGIN ACETATE
  8. CARBOXYMETHYLCELLULOSE SODIUM [Concomitant]
     Active Substance: CARBOXYMETHYLCELLULOSE SODIUM
  9. CIPROFLOXACIN [Concomitant]
     Active Substance: CIPROFLOXACIN
  10. DEXAMETHASONE [Concomitant]
     Active Substance: DEXAMETHASONE
  11. DIPHENHYDRAMINE [Concomitant]
     Active Substance: DIPHENHYDRAMINE
  12. EPINEPHRINE [Concomitant]
     Active Substance: EPINEPHRINE
  13. ERAXIS [Concomitant]
     Active Substance: ANIDULAFUNGIN
  14. FLUCONAZOLE [Concomitant]
     Active Substance: FLUCONAZOLE
  15. FUROSEMIDE [Concomitant]
     Active Substance: FUROSEMIDE
  16. HYDROMORPHONE [Concomitant]
     Active Substance: HYDROMORPHONE
  17. KINERET [Concomitant]
     Active Substance: ANAKINRA
  18. LEVETIRACETAM [Concomitant]
     Active Substance: LEVETIRACETAM
  19. MAGNESIUM SULFATE [Concomitant]
     Active Substance: MAGNESIUM SULFATE\MAGNESIUM SULFATE HEPTAHYDRATE
  20. MEPERIDINE [Concomitant]
     Active Substance: MEPERIDINE
  21. METHYLPREDNISOLONE [Concomitant]
     Active Substance: METHYLPREDNISOLONE
  22. NOREPINEPHRINE [Concomitant]
     Active Substance: NOREPINEPHRINE\NOREPINEPHRINE BITARTRATE
  23. ONDANSETRON [Concomitant]
     Active Substance: ONDANSETRON
  24. PANTOPRAZOLE [Concomitant]
     Active Substance: PANTOPRAZOLE
  25. PENTAMIDINE ISETHIONATE [Concomitant]
     Active Substance: PENTAMIDINE ISETHIONATE
  26. PIPERACILLIN SODIUM\TAZOBACTAM SODIUM [Concomitant]
     Active Substance: PIPERACILLIN SODIUM\TAZOBACTAM SODIUM
  27. POLYETHYLENE GLYCOL 3350 [Concomitant]
     Active Substance: POLYETHYLENE GLYCOL 3350
  28. POTASSIUM CHLORIDE [Concomitant]
     Active Substance: POTASSIUM CHLORIDE
  29. POTASSIUM PHOSPHATES [Concomitant]
     Active Substance: POTASSIUM PHOSPHATE, DIBASIC\POTASSIUM PHOSPHATE, MONOBASIC
  30. PROCHLORPERAZINE [Concomitant]
     Active Substance: PROCHLORPERAZINE
  31. ALBUTEROL [Concomitant]
     Active Substance: ALBUTEROL
  32. SENNOSIDES [Concomitant]
     Active Substance: SENNOSIDES
  33. SODIUM PHOSPHATE [Concomitant]
     Active Substance: SODIUM PHOSPHATE
  34. TINZAPARIN [Concomitant]
     Active Substance: TINZAPARIN
  35. TRIMETHOPRIM [Concomitant]
     Active Substance: TRIMETHOPRIM
  36. VALACYCLOVIR [Concomitant]
     Active Substance: VALACYCLOVIR HYDROCHLORIDE

REACTIONS (2)
  - Disease progression [Recovered/Resolved]
  - Immune effector cell-associated neurotoxicity syndrome [Recovered/Resolved]
